FAERS Safety Report 6487674-9 (Version None)
Quarter: 2009Q4

REPORT INFORMATION
  Report Type: 
  Country: None (occurrence: None)
  Receive Date: 20091210
  Receipt Date: 20091204
  Transmission Date: 20100525
  Serious: Yes (Hospitalization)
  Sender: FDA-Public Use
  Company Number: US-ELI_LILLY_AND_COMPANY-US200912001232

PATIENT
  Sex: Female

DRUGS (7)
  1. HUMALOG [Suspect]
     Indication: DIABETES MELLITUS
     Dosage: 12 U, 3/D
     Dates: start: 20091201
  2. HUMALOG [Suspect]
     Dosage: UNK, AS NEEDED
     Dates: start: 20091201
  3. HUMALOG [Suspect]
     Dosage: 12 U, 3/D
     Dates: start: 20091203, end: 20091201
  4. HUMALOG [Suspect]
     Dosage: UNK, AS NEEDED
     Dates: start: 20091203
  5. HUMALOG [Suspect]
     Dosage: 12 U, 3/D
     Route: 058
     Dates: end: 20091203
  6. HUMALOG [Suspect]
     Dosage: UNK, AS NEEDED
     Route: 058
     Dates: end: 20091203
  7. LANTUS [Concomitant]
     Dosage: UNK, EACH EVENING
     Dates: start: 20091001

REACTIONS (3)
  - DRUG DISPENSING ERROR [None]
  - VISUAL IMPAIRMENT [None]
  - WRONG TECHNIQUE IN DRUG USAGE PROCESS [None]
